FAERS Safety Report 19071822 (Version 1)
Quarter: 2021Q1

REPORT INFORMATION
  Report Type: Spontaneous
  Country: GB (occurrence: GB)
  Receive Date: 20210330
  Receipt Date: 20210330
  Transmission Date: 20210420
  Serious: Yes (Hospitalization, Other)
  Sender: FDA-Public Use
  Company Number: GB-CELLTRION-2021-UK-000086

PATIENT
  Age: 17 Year
  Sex: Male

DRUGS (3)
  1. RISPERIDONE (NON?SPECIFIC) [Suspect]
     Active Substance: RISPERIDONE
     Indication: PRODUCT USED FOR UNKNOWN INDICATION
     Dosage: 4MG DAILY
     Route: 065
  2. ARIPIPRAZOLE. [Concomitant]
     Active Substance: ARIPIPRAZOLE
     Dosage: 2 MG DAILY
  3. SODIUM VALPROATE [Concomitant]
     Active Substance: VALPROATE SODIUM
     Dosage: 400MG IN THE MORNING/700MG AT NIGHT

REACTIONS (2)
  - Oculogyric crisis [Recovered/Resolved]
  - Parkinsonism [Unknown]
